FAERS Safety Report 5006706-8 (Version None)
Quarter: 2006Q2

REPORT INFORMATION
  Report Type: 
  Country: None (occurrence: None)
  Receive Date: 20060519
  Receipt Date: 20060427
  Transmission Date: 20061013
  Serious: Yes (Hospitalization, Other)
  Sender: FDA-Public Use
  Company Number: PHBS2006NO06512

PATIENT
  Age: 61 Year
  Sex: Male

DRUGS (8)
  1. ZOMETA [Suspect]
     Indication: OSTEOPOROSIS
     Dosage: 4 MG
     Route: 065
     Dates: start: 20020612, end: 20060105
  2. SELO-ZOK [Concomitant]
     Dosage: 50 MG, QD
  3. NEXIUM [Concomitant]
  4. ZOLOFT [Concomitant]
     Dosage: 100 MG, QD
  5. OXYNORM [Concomitant]
     Dosage: UNK, PRN
  6. IMOVANE [Concomitant]
     Dosage: 7.5 MG/D
  7. DURAGESIC-100 [Concomitant]
  8. DIOVAN [Concomitant]
     Dosage: 80 MG, QD

REACTIONS (4)
  - HYPERBARIC OXYGEN THERAPY [None]
  - IMPAIRED HEALING [None]
  - SURGERY [None]
  - TOOTH EXTRACTION [None]
